FAERS Safety Report 25624466 (Version 2)
Quarter: 2025Q4

REPORT INFORMATION
  Report Type: Report from Study
  Country: US (occurrence: US)
  Receive Date: 20250730
  Receipt Date: 20251127
  Transmission Date: 20260118
  Serious: Yes (Hospitalization)
  Sender: GILEAD
  Company Number: US-GILEAD-2025-0722150

PATIENT
  Age: 60 Year
  Sex: Female
  Weight: 56.4 kg

DRUGS (2)
  1. SACITUZUMAB GOVITECAN-HZIY [Suspect]
     Active Substance: SACITUZUMAB GOVITECAN-HZIY
     Indication: Breast cancer
     Dosage: 560 MG, DAY1 AND DAY 8
     Route: 042
     Dates: start: 20250718
  2. KANJINTI [Suspect]
     Active Substance: TRASTUZUMAB-ANNS
     Indication: Breast cancer
     Dosage: 450 MG, Q21
     Route: 042
     Dates: start: 20250724

REACTIONS (6)
  - Sinus tachycardia [Unknown]
  - Chest discomfort [Unknown]
  - Asthenia [Unknown]
  - Fatigue [Unknown]
  - Oropharyngeal pain [Unknown]
  - Cough [Unknown]

NARRATIVE: CASE EVENT DATE: 20250722
